FAERS Safety Report 7349622-9 (Version None)
Quarter: 2011Q1

REPORT INFORMATION
  Report Type: 
  Country: None (occurrence: None)
  Receive Date: 20110314
  Receipt Date: 20110302
  Transmission Date: 20110831
  Serious: Yes (Other)
  Sender: FDA-Public Use
  Company Number: US-PFIZER INC-2011050688

PATIENT
  Sex: Female
  Weight: 60.8 kg

DRUGS (13)
  1. ACETYLSALICYLIC ACID [Concomitant]
     Indication: CARDIOVASCULAR EVENT PROPHYLAXIS
     Dosage: 81 MG, 1X/DAY
     Route: 048
     Dates: start: 20000101
  2. HYDROCHLOROTHIAZIDE [Concomitant]
     Indication: HYPERTENSION
     Dosage: 12.5 MG, 1X/DAY
     Route: 048
     Dates: start: 20090101
  3. CHONDROITIN/GLUCOSAMINE [Concomitant]
     Indication: OSTEOARTHRITIS
     Dosage: 1 TAB
     Route: 048
     Dates: start: 20000101
  4. PROTONIX [Concomitant]
     Indication: EROSIVE OESOPHAGITIS
     Dosage: 40 MG, 1X/DAY
     Route: 048
     Dates: start: 20070101
  5. VITAMIN B-12 [Concomitant]
     Indication: VITAMIN SUPPLEMENTATION
     Dosage: 1 IU
     Route: 048
     Dates: start: 20080101
  6. ZOLOFT [Concomitant]
     Indication: DEPRESSION
     Dosage: 50 MG, 1X/DAY
     Route: 048
     Dates: start: 20000101
  7. EVISTA [Concomitant]
     Indication: OSTEOPOROSIS
     Dosage: 60 MG, 1X/DAY
     Route: 048
     Dates: start: 20020101
  8. CHONDROITIN [Concomitant]
     Indication: SUPPLEMENTATION THERAPY
     Dosage: 1 TAB
     Route: 048
     Dates: start: 20000101
  9. LIPITOR [Suspect]
     Indication: HYPERLIPIDAEMIA
     Dosage: 80 MG, 2X/DAY
     Route: 048
     Dates: start: 20101104
  10. VEGF-TRAP [Suspect]
     Indication: RETINAL VEIN OCCLUSION
     Dosage: MASKED VEGF TRAP-EYE 2 MG OR SHAM Q4WKS/PRN, INTRAVITREAL
     Dates: start: 20100301
  11. METOPROLOL [Concomitant]
     Indication: HYPERTENSION
     Dosage: 50 MG, 1X/DAY
     Route: 048
     Dates: start: 20000101
  12. CENTRUM [Concomitant]
     Indication: VITAMIN SUPPLEMENTATION
     Dosage: 1 TAB
     Route: 048
     Dates: start: 20050101
  13. SYNTHROID [Concomitant]
     Indication: HYPOTHYROIDISM
     Dosage: 0.075 MG, 1X/DAY
     Route: 048
     Dates: start: 19800101

REACTIONS (9)
  - WEIGHT DECREASED [None]
  - MUSCULOSKELETAL STIFFNESS [None]
  - NECK PAIN [None]
  - DECREASED APPETITE [None]
  - CONSTIPATION [None]
  - BLOOD GLUCOSE INCREASED [None]
  - RENAL FAILURE ACUTE [None]
  - INCORRECT DOSE ADMINISTERED [None]
  - WHITE BLOOD CELL COUNT INCREASED [None]
